FAERS Safety Report 17590655 (Version 1)
Quarter: 2020Q1

REPORT INFORMATION
  Report Type: Spontaneous
  Country: US (occurrence: US)
  Receive Date: 20200325
  Receipt Date: 20200325
  Transmission Date: 20200409
  Serious: Yes (Hospitalization)
  Sender: FDA-Public Use
  Company Number: None

PATIENT
  Age: 43 Year
  Sex: Male
  Weight: 127.46 kg

DRUGS (2)
  1. CLOBAZAM 10MG TABLET [Suspect]
     Active Substance: CLOBAZAM
     Indication: MIGRAINE
     Route: 048
  2. ELETRIPTAN 40MG [Suspect]
     Active Substance: ELETRIPTAN
     Indication: MIGRAINE
     Dosage: ?          OTHER FREQUENCY:DAILY PRN;?
     Route: 048

REACTIONS (2)
  - Product substitution issue [None]
  - Anaphylactic reaction [None]
